FAERS Safety Report 6935886-X (Version None)
Quarter: 2010Q3

REPORT INFORMATION
  Report Type: 
  Country: None (occurrence: None)
  Receive Date: 20100823
  Receipt Date: 20100809
  Transmission Date: 20110219
  Serious: Yes (Hospitalization, Other)
  Sender: FDA-Public Use
  Company Number: AU-ELI_LILLY_AND_COMPANY-AU201006001486

PATIENT
  Sex: Female

DRUGS (13)
  1. FORTEO [Suspect]
     Indication: OSTEOPOROSIS
     Dosage: 20 UG, DAILY (1/D)
     Route: 065
     Dates: start: 20091005
  2. FORTEO [Suspect]
     Dosage: 20 UG, DAILY (1/D)
     Route: 065
     Dates: start: 20100101
  3. ASPIRIN [Concomitant]
     Dosage: 100 MG, DAILY (1/D)
     Route: 065
  4. ENDEP [Concomitant]
     Dosage: 10 MG, EACH EVENING
     Route: 065
  5. IKOREL [Concomitant]
     Dosage: 20 MG, 2/D
     Route: 065
  6. IMDUR [Concomitant]
     Dosage: 120 MG, EACH MORNING
     Route: 065
  7. LIPITOR [Concomitant]
     Dosage: 80 MG, DAILY (1/D)
     Route: 065
  8. METOHEXAL [Concomitant]
     Dosage: 75 MG, 2/D
     Route: 065
  9. NORMACOL PLUS [Concomitant]
     Dosage: 2 D/F, 2/D
     Route: 065
  10. NORVASC [Concomitant]
     Dosage: 10 MG, DAILY (1/D)
  11. PLAVIX [Concomitant]
     Dosage: 75 MG, DAILY (1/D)
     Route: 065
  12. SOMAC [Concomitant]
     Dosage: 20 MG, 2/D
     Route: 065
  13. VENTOLIN                                /SCH/ [Concomitant]
     Dosage: 2 D/F, EVERY 4 HRS
     Route: 065

REACTIONS (2)
  - ANGINA PECTORIS [None]
  - PATHOLOGICAL FRACTURE [None]
